FAERS Safety Report 8674957 (Version 5)
Quarter: 2013Q1

REPORT INFORMATION
  Report Type: Spontaneous
  Country: FR (occurrence: FR)
  Receive Date: 20120720
  Receipt Date: 20130213
  Transmission Date: 20140127
  Serious: Yes (Death, Other)
  Sender: FDA-Public Use
  Company Number: FR-PFIZER INC-2012170158

PATIENT
  Age: 15 Year
  Sex: Female

DRUGS (12)
  1. VFEND [Suspect]
     Indication: BRONCHOPULMONARY ASPERGILLOSIS
     Dosage: 200 MG, 2X/DAY
     Route: 042
     Dates: start: 20120514, end: 20120525
  2. VFEND [Interacting]
     Indication: BRONCHOPULMONARY ASPERGILLOSIS
     Dosage: 200 MG, 2X/DAY
     Route: 048
     Dates: end: 20120531
  3. VANCOMYCIN HCL [Interacting]
     Dosage: 1 G, 2X/DAY
     Route: 042
     Dates: start: 20120522, end: 20120603
  4. CIPROFLOXACIN HCL [Suspect]
     Dosage: UNK
     Dates: start: 20120528, end: 20120604
  5. BACTRIM [Suspect]
     Indication: PROPHYLAXIS
     Dosage: 1 DF, THREE TIMES PER WEEK
     Route: 042
     Dates: start: 20120428
  6. CLAVENTIN [Suspect]
     Dosage: 1 DF, 3X/DAY
     Route: 042
     Dates: start: 20120528, end: 20120604
  7. CANCIDAS [Suspect]
     Dosage: UNK
     Route: 042
     Dates: start: 20120528, end: 20120530
  8. GENTAMYCIN [Interacting]
     Dosage: UNK
     Route: 042
     Dates: start: 20120526, end: 20120530
  9. NEORAL [Interacting]
     Dosage: 100 MG, 2X/DAY
     Route: 048
     Dates: start: 20120423, end: 20120531
  10. NEUPOGEN [Concomitant]
     Dosage: UNK
     Dates: start: 201204, end: 20120607
  11. COLISTIN [Concomitant]
     Dosage: UNK
  12. GENTAMYCIN [Concomitant]
     Route: 048

REACTIONS (4)
  - Drug interaction [Fatal]
  - Overdose [Recovered/Resolved]
  - Overdose [Unknown]
  - Renal failure acute [Fatal]
